FAERS Safety Report 21583195 (Version 1)
Quarter: 2022Q4

REPORT INFORMATION
  Report Type: Spontaneous
  Country: US (occurrence: None)
  Receive Date: 20221110
  Receipt Date: 20221110
  Transmission Date: 20230113
  Serious: Yes (Hospitalization, Other)
  Sender: FDA-Public Use
  Company Number: None

PATIENT
  Age: 65 Year
  Sex: Female

DRUGS (2)
  1. MIDAZOLAM HYDROCHLORIDE [Suspect]
     Active Substance: MIDAZOLAM HYDROCHLORIDE
     Dosage: 2-4 MG PRN IV? ?
     Route: 042
     Dates: start: 20220804, end: 20220804
  2. LORAZEPAM [Suspect]
     Active Substance: LORAZEPAM
     Dosage: 1-2 MG PRN IV
     Route: 042
     Dates: start: 20220804, end: 20220804

REACTIONS (2)
  - Agitation [None]
  - Paradoxical drug reaction [None]

NARRATIVE: CASE EVENT DATE: 20220804
